FAERS Safety Report 14580435 (Version 3)
Quarter: 2018Q1

REPORT INFORMATION
  Report Type: Other
  Country: CZ (occurrence: CZ)
  Receive Date: 20180228
  Receipt Date: 20180328
  Transmission Date: 20180509
  Serious: Yes (Hospitalization, Other)
  Sender: FDA-Public Use
  Company Number: CZ-VELOXIS PHARMACEUTICALS-2042691

PATIENT
  Age: 40 Year
  Sex: Male

DRUGS (6)
  1. ENVARSUS XR [Suspect]
     Active Substance: TACROLIMUS
     Indication: RENAL TRANSPLANT
  2. VALGANCICLOVIR. [Concomitant]
     Active Substance: VALGANCICLOVIR
  3. PREDNISONE. [Suspect]
     Active Substance: PREDNISONE
  4. TACROLIMUS. [Suspect]
     Active Substance: TACROLIMUS
  5. ANTITHYMOCYTE IMMUNOGLOBULIN [Concomitant]
     Active Substance: THYMOCYTE IMMUNE GLOBULIN NOS
  6. MYCOPHENOLIC ACID (MYCOPHENOLATE SODIUM) [Suspect]
     Active Substance: MYCOPHENOLATE SODIUM

REACTIONS (10)
  - Haematuria [Unknown]
  - Condition aggravated [Unknown]
  - Acute kidney injury [Unknown]
  - Transplant failure [Unknown]
  - C-reactive protein increased [Unknown]
  - Megacolon [Unknown]
  - Diarrhoea [Recovering/Resolving]
  - Clostridium difficile infection [Recovering/Resolving]
  - Glomerular filtration rate decreased [Unknown]
  - Proteinuria [Unknown]
